FAERS Safety Report 13192835 (Version 16)
Quarter: 2020Q3

REPORT INFORMATION
  Report Type: Report from Study
  Country: CO (occurrence: CO)
  Receive Date: 20170207
  Receipt Date: 20200923
  Transmission Date: 20201102
  Serious: Yes (Life-Threatening, Hospitalization, Other)
  Sender: FDA-Public Use
  Company Number: CO-INCYTE CORPORATION-2016IN006772

PATIENT

DRUGS (23)
  1. ESOMEPRAZOLE. [Suspect]
     Active Substance: ESOMEPRAZOLE MAGNESIUM
     Indication: PRODUCT USED FOR UNKNOWN INDICATION
     Dosage: UNK
     Route: 065
  2. EUTIROX [Concomitant]
     Active Substance: LEVOTHYROXINE SODIUM
     Indication: PRODUCT USED FOR UNKNOWN INDICATION
     Dosage: 50 MG AND THREE TIMES A WEEK 75 MG
     Route: 065
  3. EUTHYROX [Concomitant]
     Active Substance: LEVOTHYROXINE SODIUM
     Indication: THYROID DISORDER
     Dosage: 75 MG (MONDAY, WEDNESDAY AND FRIDAY)/50 MG (TUESDAY, THURSDAY. SATURDAY AND SUNDAY)
     Route: 065
  4. JAKAVI [Suspect]
     Active Substance: RUXOLITINIB
     Dosage: 15 MG, Q12H
     Route: 048
  5. JAKAVI [Suspect]
     Active Substance: RUXOLITINIB
     Dosage: 10 MG, BID (10 MG IN THE MORNING AND 10 MG IN THE AFTERNOON)
     Route: 048
  6. JAKAVI [Suspect]
     Active Substance: RUXOLITINIB
     Dosage: 30 MG, QD
     Route: 048
  7. JAKAVI [Suspect]
     Active Substance: RUXOLITINIB
     Dosage: 15 MG, Q12H
     Route: 048
     Dates: start: 201802
  8. ECOTRIN [Concomitant]
     Active Substance: ASPIRIN
     Indication: PRODUCT USED FOR UNKNOWN INDICATION
     Dosage: 81 MG, QOD
     Route: 065
  9. JAKAVI [Suspect]
     Active Substance: RUXOLITINIB
     Dosage: 20 MG, QD
     Route: 048
  10. TRUXAL [CHLORPROTHIXENE] [Concomitant]
     Active Substance: CHLORPROTHIXENE
     Indication: PRODUCT USED FOR UNKNOWN INDICATION
     Dosage: UNK
     Route: 065
  11. JAKAVI [Suspect]
     Active Substance: RUXOLITINIB
     Dosage: 15 MG, QD
     Route: 048
  12. JAKAVI [Suspect]
     Active Substance: RUXOLITINIB
     Indication: MYELOFIBROSIS
     Dosage: 20 MG, Q12H
     Route: 048
     Dates: start: 20160922
  13. JAKAVI [Suspect]
     Active Substance: RUXOLITINIB
     Dosage: 20 MG, Q12H (20 MG IN THE MORNING AND 20 MG IN THE AFTERNOON)
     Route: 048
  14. AMOXICILLIN. [Suspect]
     Active Substance: AMOXICILLIN
     Indication: SINUSITIS
     Dosage: 1000 OT, UNK
     Route: 065
     Dates: end: 20170118
  15. MORPHINE [Suspect]
     Active Substance: MORPHINE
     Indication: PAIN
     Dosage: UNK (PATCHES)
     Route: 065
  16. ATIVAN [Concomitant]
     Active Substance: LORAZEPAM
     Indication: PRODUCT USED FOR UNKNOWN INDICATION
     Dosage: 2 MG, QD
     Route: 065
  17. JAKAVI [Suspect]
     Active Substance: RUXOLITINIB
     Dosage: 2 DF, QD (20 MG)
     Route: 048
     Dates: start: 201705
  18. JAKAVI [Suspect]
     Active Substance: RUXOLITINIB
     Dosage: 10 MG, QD
     Route: 048
  19. JAKAVI [Suspect]
     Active Substance: RUXOLITINIB
     Dosage: 20 MG, QD
     Route: 048
  20. TRUXA [Concomitant]
     Indication: PRODUCT USED FOR UNKNOWN INDICATION
     Dosage: UNK
     Route: 065
  21. JAKAVI [Suspect]
     Active Substance: RUXOLITINIB
     Dosage: 10 MG, Q12H
     Route: 048
  22. EZOLIUM [Concomitant]
     Indication: PRODUCT USED FOR UNKNOWN INDICATION
     Dosage: UNK
     Route: 065
  23. JAKAVI [Suspect]
     Active Substance: RUXOLITINIB
     Dosage: 20 MG, QD
     Route: 048

REACTIONS (36)
  - Helicobacter infection [Unknown]
  - Lymphocyte count increased [Unknown]
  - Pain in extremity [Unknown]
  - Antiphospholipid syndrome [Unknown]
  - Dyspnoea [Unknown]
  - Dysphonia [Unknown]
  - Herpes zoster [Unknown]
  - Nausea [Unknown]
  - Sinusitis [Unknown]
  - Asthenia [Unknown]
  - Speech disorder [Unknown]
  - Haemoglobin decreased [Unknown]
  - Fluid retention [Unknown]
  - Fatigue [Unknown]
  - Illness [Unknown]
  - Visual impairment [Unknown]
  - Dry eye [Unknown]
  - Somnolence [Unknown]
  - Myelofibrosis [Unknown]
  - Arthralgia [Unknown]
  - Pain [Unknown]
  - Peripheral swelling [Unknown]
  - Abdominal pain [Unknown]
  - Dizziness [Unknown]
  - Blood lactate dehydrogenase increased [Unknown]
  - Platelet count decreased [Unknown]
  - Platelet count increased [Unknown]
  - Gastritis [Unknown]
  - Weight increased [Unknown]
  - Influenza [Unknown]
  - White blood cell count increased [Unknown]
  - Gastric dilatation [Unknown]
  - Anaemia [Unknown]
  - Blood pressure decreased [Unknown]
  - Product dispensing error [Unknown]
  - Feeling abnormal [Unknown]

NARRATIVE: CASE EVENT DATE: 20161019
